FAERS Safety Report 19282396 (Version 1)
Quarter: 2021Q2

REPORT INFORMATION
  Report Type: Spontaneous
  Country: US (occurrence: US)
  Receive Date: 20210521
  Receipt Date: 20210521
  Transmission Date: 20210717
  Serious: Yes (Other)
  Sender: FDA-Public Use
  Company Number: US-TOPROL-2021000091

PATIENT
  Age: 72 Year
  Sex: Male
  Weight: 145 kg

DRUGS (13)
  1. BYDUREON BCISE [Suspect]
     Active Substance: EXENATIDE
     Route: 058
  2. SPIRONOLACTONE. [Concomitant]
     Active Substance: SPIRONOLACTONE
     Route: 048
  3. METOPROLOL SUCCINATE. [Suspect]
     Active Substance: METOPROLOL SUCCINATE
     Route: 048
  4. CLONIDINE. [Concomitant]
     Active Substance: CLONIDINE
     Route: 048
  5. METFORMIN [Concomitant]
     Active Substance: METFORMIN HYDROCHLORIDE
     Route: 048
  6. CHLORPHENIRAMINE MALEATE. [Concomitant]
     Active Substance: CHLORPHENIRAMINE MALEATE
     Dosage: 4 MG, AS REQUIRED
     Route: 048
  7. BYDUREON [Suspect]
     Active Substance: EXENATIDE
     Route: 058
  8. GLYBURIDE. [Concomitant]
     Active Substance: GLYBURIDE
     Route: 048
  9. MULTIVITAMIN FOR SENIORS [Concomitant]
     Dosage: UNKNOWN
     Route: 065
  10. LOSARTAN. [Concomitant]
     Active Substance: LOSARTAN
     Route: 048
  11. LASIX [Concomitant]
     Active Substance: FUROSEMIDE
     Route: 048
  12. TRESIBA [Concomitant]
     Active Substance: INSULIN DEGLUDEC
     Dosage: 36 U.S.P. UNITS
     Route: 058
  13. STATIN (GENERIC UNKNOWN NAME) [Concomitant]
     Route: 048

REACTIONS (5)
  - Cyst [Recovered/Resolved]
  - Nephrolithiasis [Recovered/Resolved]
  - Renal colic [Unknown]
  - Inappropriate schedule of product administration [Unknown]
  - Blood urine [Unknown]
